FAERS Safety Report 4952749-X (Version None)
Quarter: 2006Q1

REPORT INFORMATION
  Report Type: 
  Country: None (occurrence: None)
  Receive Date: 20060320
  Receipt Date: 20040723
  Transmission Date: 20060701
  Serious: Yes (Hospitalization, Other)
  Sender: FDA-Public Use
  Company Number: HQ5559202DEC2002

PATIENT
  Age: 75 Year
  Sex: Male

DRUGS (6)
  1. MYLOTARG [Suspect]
     Indication: ACUTE MYELOID LEUKAEMIA
     Dosage: SEE IMAGE
     Route: 042
     Dates: start: 20021022, end: 20021022
  2. MYLOTARG [Suspect]
     Indication: ACUTE MYELOID LEUKAEMIA
     Dosage: SEE IMAGE
     Route: 042
     Dates: start: 20021105, end: 20021105
  3. PRDNISONE (PREDNISONE) [Concomitant]
  4. DYAZIDE (HYDROCHLORITHIAZIDE/TRIAMTERENE) [Concomitant]
  5. CELEBREX [Concomitant]
  6. RESTORIL [Concomitant]

REACTIONS (3)
  - BLOOD BILIRUBIN INCREASED [None]
  - FEBRILE NEUTROPENIA [None]
  - PANCYTOPENIA [None]
